FAERS Safety Report 9982456 (Version 1)
Quarter: 2014Q1

REPORT INFORMATION
  Report Type: Report from Study
  Country: US (occurrence: US)
  Receive Date: 20140307
  Receipt Date: 20140307
  Transmission Date: 20141002
  Serious: No
  Sender: FDA-Public Use
  Company Number: US-ABBVIE-13P-163-1180429-00

PATIENT
  Sex: Female
  Weight: 56.75 kg

DRUGS (18)
  1. HUMIRA [Suspect]
     Indication: RHEUMATOID ARTHRITIS
     Route: 058
     Dates: start: 2003
  2. NEXIUM [Concomitant]
     Indication: GASTROOESOPHAGEAL REFLUX DISEASE
  3. AMITIZA [Concomitant]
     Indication: GASTROINTESTINAL MOTILITY DISORDER
  4. EVOXAC [Concomitant]
     Indication: APTYALISM
  5. PREDNISONE [Concomitant]
     Indication: RHEUMATOID ARTHRITIS
  6. CELEBREX [Concomitant]
     Indication: RHEUMATOID ARTHRITIS
  7. FLEXERIL [Concomitant]
     Indication: MYALGIA
  8. REMERON [Concomitant]
     Indication: GASTROINTESTINAL MOTILITY DISORDER
  9. PROCARDIA [Concomitant]
     Indication: RAYNAUD^S PHENOMENON
  10. TOPROL [Concomitant]
     Indication: ARRHYTHMIA
  11. XANAX [Concomitant]
     Indication: ARRHYTHMIA
  12. NEURONTIN [Concomitant]
     Indication: MIGRAINE
  13. TOPIRAMATE [Concomitant]
     Indication: MIGRAINE
  14. ALLEGRA [Concomitant]
     Indication: HYPERSENSITIVITY
  15. TRAMADOL [Concomitant]
     Indication: RHEUMATOID ARTHRITIS
  16. VITAMIN B 12 [Concomitant]
     Indication: PRODUCT USED FOR UNKNOWN INDICATION
  17. PHENERGAN [Concomitant]
     Indication: NAUSEA
  18. MAXALT [Concomitant]
     Indication: MIGRAINE

REACTIONS (2)
  - Diarrhoea [Not Recovered/Not Resolved]
  - Gastrointestinal bacterial infection [Unknown]
